FAERS Safety Report 23707251 (Version 1)
Quarter: 2024Q2

REPORT INFORMATION
  Report Type: Spontaneous
  Country: US (occurrence: US)
  Receive Date: 20240404
  Receipt Date: 20240404
  Transmission Date: 20240716
  Serious: Yes (Other)
  Sender: FDA-Public Use
  Company Number: US-MYLANLABS-2024M1029647

PATIENT
  Age: 64 Year
  Sex: Female

DRUGS (5)
  1. PACLITAXEL [Suspect]
     Active Substance: PACLITAXEL
     Indication: Adenocarcinoma pancreas
     Dosage: UNK
     Route: 065
  2. GEMCITABINE [Suspect]
     Active Substance: GEMCITABINE
     Indication: Adenocarcinoma pancreas
     Dosage: UNK, WEEKLY
     Route: 065
  3. GEMCITABINE [Suspect]
     Active Substance: GEMCITABINE
     Dosage: UNK, WITH PACLITAXEL
     Route: 065
  4. GEMCITABINE [Suspect]
     Active Substance: GEMCITABINE
     Dosage: CYCLE,1000-600 MG/M2 ADJUSTED PER CYTOPENIA, FIRST 2?CYCLE DAYS?1, 8, AND 15 OF 28?DAY CYCLE, CYCLES
     Route: 065
     Dates: start: 2023
  5. ERLOTINIB [Suspect]
     Active Substance: ERLOTINIB
     Indication: Adenocarcinoma pancreas
     Dosage: 100 MILLIGRAM, QD
     Route: 065
     Dates: start: 2023

REACTIONS (3)
  - Pneumonitis [Recovered/Resolved]
  - Disease progression [Unknown]
  - Drug ineffective [Unknown]

NARRATIVE: CASE EVENT DATE: 20231001
